FAERS Safety Report 22196610 (Version 2)
Quarter: 2023Q2

REPORT INFORMATION
  Report Type: Spontaneous
  Country: JP (occurrence: None)
  Receive Date: 20230411
  Receipt Date: 20230418
  Transmission Date: 20230722
  Serious: No
  Sender: FDA-Public Use
  Company Number: JP-Orion Corporation ORION PHARMA-ENT 2023-0017

PATIENT
  Sex: Male

DRUGS (4)
  1. COMTAN [Suspect]
     Active Substance: ENTACAPONE
     Indication: Parkinson^s disease
     Dates: start: 2012
  2. MENECIT [Concomitant]
     Dosage: ONGOING
  3. NEUPRO [Concomitant]
     Active Substance: ROTIGOTINE
     Dosage: ONGOING
  4. DONEPEZIL HYDROCHLORIDE [Concomitant]
     Active Substance: DONEPEZIL HYDROCHLORIDE
     Dosage: ONGOING

REACTIONS (2)
  - Wrong technique in product usage process [Unknown]
  - Product colour issue [Unknown]
